FAERS Safety Report 8000515-3 (Version None)
Quarter: 2011Q4

REPORT INFORMATION
  Report Type: 
  Country: None (occurrence: None)
  Receive Date: 20111222
  Receipt Date: 20111123
  Transmission Date: 20120403
  Serious: No
  Sender: FDA-Public Use
  Company Number: US-BAYER-2011-114963

PATIENT

DRUGS (1)
  1. CIPROFLOXACIN [Suspect]

REACTIONS (1)
  - NO ADVERSE EVENT [None]
